FAERS Safety Report 25751530 (Version 2)
Quarter: 2025Q3

REPORT INFORMATION
  Report Type: Spontaneous
  Country: EU (occurrence: EU)
  Receive Date: 20250902
  Receipt Date: 20250910
  Transmission Date: 20251021
  Serious: Yes (Death, Hospitalization, Other)
  Sender: IMMUNOCORE
  Company Number: EU-IMMUNOCORE, LTD.-2025-IMC-004611

PATIENT

DRUGS (1)
  1. TEBENTAFUSP [Suspect]
     Active Substance: TEBENTAFUSP
     Indication: Malignant melanoma

REACTIONS (5)
  - Malignant neoplasm progression [Fatal]
  - Jaundice [Unknown]
  - Pyrexia [Unknown]
  - Pyrexia [Unknown]
  - Rash [Unknown]

NARRATIVE: CASE EVENT DATE: 20230401
